FAERS Safety Report 8620959-6 (Version None)
Quarter: 2012Q3

REPORT INFORMATION
  Report Type: 
  Country: None (occurrence: None)
  Receive Date: 20120824
  Receipt Date: 20120814
  Transmission Date: 20120928
  Serious: Yes (Hospitalization)
  Sender: FDA-Public Use
  Company Number: US-ELI_LILLY_AND_COMPANY-US201208004576

PATIENT
  Sex: Female

DRUGS (13)
  1. FOLBEE [Concomitant]
     Dosage: UNK, BID
  2. ONDANSETRON [Concomitant]
     Indication: NAUSEA
     Dosage: 4 MG, PRN
  3. FERROUS GLUCONATE [Concomitant]
     Dosage: 324 MG, QD
  4. FAMOTIDINE [Concomitant]
     Dosage: 40 MG, BID
  5. FORTEO [Suspect]
     Indication: OSTEOPOROSIS
     Dosage: 20 UG, QD
     Dates: start: 20120514, end: 20120610
  6. VITAMIN D [Concomitant]
     Dosage: 50000 IU, WEEKLY (1/W)
  7. CYANOCOBALAMIN [Concomitant]
     Dosage: 1000 UG, MONTHLY (1/M)
  8. CARVEDILOL [Concomitant]
     Dosage: 3.125 MG, QD
  9. HYDROCODONE BITARTRATE + ACETAMINOPHEN [Concomitant]
     Indication: PAIN
     Dosage: UNK, PRN
  10. DOXYCYCLINE HCL [Concomitant]
     Dosage: 100 MG, BID
  11. CITALOPRAM HYDROBROMIDE [Concomitant]
     Dosage: 10 MG, QD
  12. PROBIOTICS [Concomitant]
     Dosage: UNK, BID
  13. LEVOFLOXACIN [Concomitant]
     Dosage: UNK, QD

REACTIONS (8)
  - PNEUMONIA [None]
  - PNEUMOTHORAX [None]
  - DYSPNOEA [None]
  - ACTIVITIES OF DAILY LIVING IMPAIRED [None]
  - APPENDICITIS PERFORATED [None]
  - RENAL FAILURE ACUTE [None]
  - APPENDICITIS [None]
  - PAIN [None]
